FAERS Safety Report 11615144 (Version 1)
Quarter: 2015Q4

REPORT INFORMATION
  Report Type: Spontaneous
  Country: PH (occurrence: PH)
  Receive Date: 20151009
  Receipt Date: 20151009
  Transmission Date: 20160304
  Serious: Yes (Hospitalization, Other)
  Sender: FDA-Public Use
  Company Number: PH-009507513-1510PHL003685

PATIENT
  Sex: Female

DRUGS (1)
  1. JANUMET [Suspect]
     Active Substance: METFORMIN HYDROCHLORIDE\SITAGLIPTIN PHOSPHATE
     Indication: DIABETES MELLITUS
     Dosage: UNK, ONCE A DAY
     Route: 048

REACTIONS (3)
  - Leg amputation [Recovered/Resolved with Sequelae]
  - Toe amputation [Recovered/Resolved with Sequelae]
  - Hypertension [Not Recovered/Not Resolved]
